FAERS Safety Report 14984296 (Version 1)
Quarter: 2018Q2

REPORT INFORMATION
  Report Type: Report from Study
  Country: PT (occurrence: PT)
  Receive Date: 20180607
  Receipt Date: 20180607
  Transmission Date: 20180711
  Serious: Yes (Other)
  Sender: FDA-Public Use
  Company Number: PT-JAZZ-2018-PT-004587

PATIENT
  Age: 22 Year
  Sex: Female
  Weight: 70 kg

DRUGS (6)
  1. MEROPENEM. [Concomitant]
     Active Substance: MEROPENEM
     Indication: PNEUMONIA
     Dosage: 3 G, QD
     Route: 042
     Dates: start: 20180302
  2. NORETISTERONE [Concomitant]
     Indication: PROPHYLAXIS
     Dosage: 10 MG, QD
     Route: 048
     Dates: start: 20180212
  3. DEFITELIO [Suspect]
     Active Substance: DEFIBROTIDE SODIUM
     Indication: VENOOCCLUSIVE DISEASE
     Dosage: 25 MG/KG, QD
     Dates: start: 20180309
  4. ACICLOVIR [Concomitant]
     Active Substance: ACYCLOVIR
     Indication: PROPHYLAXIS
     Dosage: 850 G, QD
     Route: 042
     Dates: start: 20180218
  5. MICONAZOL [Concomitant]
     Active Substance: MICONAZOLE NITRATE
     Indication: PROPHYLAXIS
     Dosage: 2 G, QD
     Route: 042
     Dates: start: 20180221
  6. TACROLIMUS. [Concomitant]
     Active Substance: TACROLIMUS
     Indication: PROPHYLAXIS
     Dosage: 2 MG, QD
     Route: 042
     Dates: start: 20180219

REACTIONS (1)
  - Haematuria [Recovering/Resolving]

NARRATIVE: CASE EVENT DATE: 20180312
